FAERS Safety Report 9827196 (Version 1)
Quarter: 2014Q1

REPORT INFORMATION
  Report Type: Spontaneous
  Country: US (occurrence: US)
  Receive Date: 20140117
  Receipt Date: 20140117
  Transmission Date: 20141002
  Serious: No
  Sender: FDA-Public Use
  Company Number: US-GLAXOSMITHKLINE-A1046798A

PATIENT
  Age: 52 Year
  Sex: Female
  Weight: 63.6 kg

DRUGS (6)
  1. PROMACTA [Suspect]
     Indication: THROMBOCYTOPENIA
     Dosage: 25MG PER DAY
     Route: 048
     Dates: end: 20131023
  2. CALCIUM D3 [Concomitant]
  3. CLARITIN [Concomitant]
  4. VITAMIN C [Concomitant]
  5. MULTIVITAMIN [Concomitant]
  6. NADOLOL [Concomitant]

REACTIONS (1)
  - Drug ineffective [Unknown]
